FAERS Safety Report 20743410 (Version 1)
Quarter: 2022Q2

REPORT INFORMATION
  Report Type: Spontaneous
  Country: US (occurrence: US)
  Receive Date: 20220425
  Receipt Date: 20220425
  Transmission Date: 20220721
  Serious: No
  Sender: FDA-Public Use
  Company Number: US-CIPLA LTD.-2022US00965

PATIENT

DRUGS (2)
  1. ALBUTEROL [Suspect]
     Active Substance: ALBUTEROL
     Indication: Product used for unknown indication
     Dosage: UNK, BID, FROM YEARS
  2. ALBUTEROL [Suspect]
     Active Substance: ALBUTEROL
     Dosage: UNK, BID
     Dates: start: 202201

REACTIONS (6)
  - Incorrect dose administered [Unknown]
  - Device ineffective [Unknown]
  - Device delivery system issue [Unknown]
  - Device malfunction [Unknown]
  - Device defective [Unknown]
  - Anticipatory anxiety [Unknown]

NARRATIVE: CASE EVENT DATE: 20220212
